FAERS Safety Report 5296775-2 (Version None)
Quarter: 2007Q2

REPORT INFORMATION
  Report Type: 
  Country: None (occurrence: None)
  Receive Date: 20070413
  Receipt Date: 20070319
  Transmission Date: 20071010
  Serious: Yes (Other)
  Sender: FDA-Public Use
  Company Number: FR-PFIZER INC-2007027227

PATIENT
  Sex: Female

DRUGS (3)
  1. AROMASIN [Suspect]
     Indication: BREAST CANCER
  2. LEVOTHYROXINE SODIUM [Concomitant]
  3. HYPERIUM [Concomitant]

REACTIONS (3)
  - HYPOACUSIS [None]
  - MUSCULOSKELETAL PAIN [None]
  - VERTIGO [None]
